FAERS Safety Report 10019117 (Version 1)
Quarter: 2014Q1

REPORT INFORMATION
  Report Type: Spontaneous
  Country: US (occurrence: US)
  Receive Date: 20140318
  Receipt Date: 20140318
  Transmission Date: 20141002
  Serious: Yes (Other)
  Sender: FDA-Public Use
  Company Number: US-TEVA-469054USA

PATIENT
  Age: 25 Year
  Sex: Female
  Weight: 86.26 kg

DRUGS (2)
  1. PARAGARD 380A [Suspect]
     Indication: CONTRACEPTION
     Route: 015
     Dates: start: 20140107, end: 20140110
  2. MULTIVITAMIN [Concomitant]
     Indication: NUTRITIONAL SUPPLEMENTATION

REACTIONS (4)
  - Device dislocation [Recovered/Resolved]
  - Pyrexia [Recovered/Resolved]
  - Pelvic pain [Recovered/Resolved]
  - Exposure during breast feeding [Unknown]
